FAERS Safety Report 4851310-5 (Version None)
Quarter: 2005Q4

REPORT INFORMATION
  Report Type: 
  Country: None (occurrence: None)
  Receive Date: 20051209
  Receipt Date: 20051129
  Transmission Date: 20060501
  Serious: Yes (Death)
  Sender: FDA-Public Use
  Company Number: MK200510-0212-2

PATIENT
  Age: 40 Year
  Sex: Female
  Weight: 80.2867 kg

DRUGS (2)
  1. HYDROCODONE BITARTRATE + ACETAMINOPHEN [Suspect]
     Dates: end: 20040218
  2. MEDICATIONS [Suspect]
     Dates: end: 20040218

REACTIONS (1)
  - DRUG TOXICITY [None]
